FAERS Safety Report 7864096-7 (Version None)
Quarter: 2011Q4

REPORT INFORMATION
  Report Type: 
  Country: None (occurrence: None)
  Receive Date: 20111028
  Receipt Date: 20111018
  Transmission Date: 20120403
  Serious: Yes (Other)
  Sender: FDA-Public Use
  Company Number: US-JNJFOC-20110910780

PATIENT
  Sex: Female
  Weight: 81.65 kg

DRUGS (22)
  1. KEPPRA [Suspect]
     Route: 048
     Dates: start: 20110901
  2. HYDROXYCHLOROQUINE SULFATE [Concomitant]
     Indication: SYSTEMIC LUPUS ERYTHEMATOSUS
     Dosage: 300MG/TABLET/200MG 1 1/2 TAB ONCE DAILY
     Route: 048
     Dates: start: 20100101
  3. FERROUS SULFATE TAB [Concomitant]
     Indication: IRON DEFICIENCY ANAEMIA
     Route: 048
     Dates: start: 20110101
  4. LORATADINE [Concomitant]
     Dosage: AS NEEDED
     Route: 048
  5. TOPAMAX [Suspect]
     Route: 048
     Dates: start: 20110302, end: 20110308
  6. TOPAMAX [Suspect]
     Dosage: HALF OF 100 MG TABLET
     Route: 048
     Dates: start: 20110901, end: 20111005
  7. SIMETHICONE [Concomitant]
     Indication: IRRITABLE BOWEL SYNDROME
     Route: 048
  8. TOPAMAX [Suspect]
     Route: 048
     Dates: start: 20110302, end: 20110308
  9. AMITRIPTYLINE HCL [Concomitant]
     Indication: NEURALGIA
     Route: 048
     Dates: start: 20110802
  10. TOPAMAX [Suspect]
     Indication: EPILEPSY
     Route: 048
     Dates: start: 20110726, end: 20110901
  11. PROAIR HFA [Concomitant]
     Indication: ASTHMA
     Route: 055
     Dates: start: 20100101
  12. RANITIDINE [Concomitant]
     Indication: DYSPEPSIA
     Route: 065
     Dates: start: 20110101
  13. LOPERAMIDE HCL [Concomitant]
     Indication: IRRITABLE BOWEL SYNDROME
     Route: 048
  14. TOPAMAX [Suspect]
     Indication: MIGRAINE PROPHYLAXIS
     Route: 048
     Dates: start: 20110726, end: 20110901
  15. TOPAMAX [Suspect]
     Indication: CONVULSION
     Route: 048
     Dates: start: 20110726, end: 20110901
  16. TOPAMAX [Suspect]
     Dosage: HALF OF 100 MG TABLET
     Route: 048
     Dates: start: 20110901, end: 20111005
  17. TOPAMAX [Suspect]
     Dosage: HALF OF 100 MG TABLET
     Route: 048
     Dates: start: 20110901, end: 20111005
  18. ADVAIR DISKUS 100/50 [Concomitant]
     Indication: ASTHMA
     Dosage: 500/50
     Route: 055
     Dates: start: 20090101
  19. PROCHLORPERAZINE [Concomitant]
     Indication: NAUSEA
     Dosage: AS NEEDED
     Route: 048
  20. TOPAMAX [Suspect]
     Route: 048
     Dates: start: 20110302, end: 20110308
  21. KEPPRA [Suspect]
     Indication: EPILEPSY
     Route: 048
     Dates: start: 20110427
  22. KEPPRA [Suspect]
     Route: 048
     Dates: start: 20110302

REACTIONS (11)
  - URINARY RETENTION [None]
  - PAIN [None]
  - SINUSITIS [None]
  - PRODUCT QUALITY ISSUE [None]
  - IRRITABLE BOWEL SYNDROME [None]
  - AMNESIA [None]
  - DRUG DOSE OMISSION [None]
  - FEELING ABNORMAL [None]
  - AGITATION [None]
  - BLINDNESS [None]
  - ABDOMINAL DISCOMFORT [None]
